FAERS Safety Report 9242434 (Version 1)
Quarter: 2013Q2

REPORT INFORMATION
  Report Type: Report from Study
  Country: GB (occurrence: GB)
  Receive Date: 20130419
  Receipt Date: 20130419
  Transmission Date: 20140414
  Serious: Yes (Life-Threatening, Hospitalization)
  Sender: FDA-Public Use
  Company Number: GB-INCYTE CORPORATION-2013IN000713

PATIENT
  Age: 61 Year
  Sex: Female
  Weight: 72 kg

DRUGS (1)
  1. INC424 [Suspect]
     Dosage: 25 MG, BID
     Route: 048
     Dates: start: 20121018, end: 20130402

REACTIONS (1)
  - Myocardial infarction [Not Recovered/Not Resolved]
